FAERS Safety Report 19008796 (Version 1)
Quarter: 2021Q1

REPORT INFORMATION
  Report Type: Spontaneous
  Country: GB (occurrence: GB)
  Receive Date: 20210316
  Receipt Date: 20210316
  Transmission Date: 20210420
  Serious: Yes (Disabling, Other)
  Sender: FDA-Public Use
  Company Number: GB-ACCORD-219663

PATIENT
  Age: 55 Year
  Sex: Female
  Weight: 62.13 kg

DRUGS (20)
  1. BECONASE AQ [Concomitant]
     Active Substance: BECLOMETHASONE DIPROPIONATE MONOHYDRATE
  2. BUSCOPAN [Concomitant]
     Active Substance: BUTYLSCOPOLAMINE BROMIDE
  3. DIPROBASE [Concomitant]
     Active Substance: CHLOROCRESOL
  4. FOLIC ACID. [Concomitant]
     Active Substance: FOLIC ACID
  5. SCHOLL FOOT POWDER SPRAY [Concomitant]
  6. CETOSTEARYL ALCOHOL [Concomitant]
     Active Substance: CETOSTEARYL ALCOHOL
  7. SERTRALINE [Concomitant]
     Active Substance: SERTRALINE HYDROCHLORIDE
  8. DARUNAVIR [Concomitant]
     Active Substance: DARUNAVIR
  9. UNGUENTUM M [Concomitant]
  10. BALNEUM PLUS [Concomitant]
  11. EMTRICITABINE [Concomitant]
     Active Substance: EMTRICITABINE
  12. TOLNAFTATE. [Concomitant]
     Active Substance: TOLNAFTATE
  13. DIAZEPAM. [Concomitant]
     Active Substance: DIAZEPAM
  14. ROSUVASTATIN. [Suspect]
     Active Substance: ROSUVASTATIN
     Indication: BLOOD CHOLESTEROL INCREASED
     Dosage: 5MG
     Route: 048
     Dates: start: 20190710, end: 20210108
  15. ASCORBIC ACID. [Concomitant]
     Active Substance: ASCORBIC ACID
  16. COLECALCIFEROL [Concomitant]
     Active Substance: CHOLECALCIFEROL
  17. TOCOPHEROL [Concomitant]
     Active Substance: TOCOPHEROL
  18. CODEINE PHOSPHATE/PARACETAMOL [Concomitant]
     Active Substance: ACETAMINOPHEN\CODEINE PHOSPHATE
  19. EUMOVATE [Concomitant]
     Active Substance: CLOBETASONE BUTYRATE
  20. FAMOTIDINE. [Concomitant]
     Active Substance: FAMOTIDINE

REACTIONS (29)
  - Lip swelling [Not Recovered/Not Resolved]
  - Swollen tongue [Not Recovered/Not Resolved]
  - Pharyngeal swelling [Not Recovered/Not Resolved]
  - Dizziness [Not Recovered/Not Resolved]
  - Rash [Recovering/Resolving]
  - Arthralgia [Not Recovered/Not Resolved]
  - Abdominal pain upper [Not Recovered/Not Resolved]
  - Blood urine present [Not Recovered/Not Resolved]
  - Renal pain [Not Recovered/Not Resolved]
  - Vomiting [Not Recovered/Not Resolved]
  - Pruritus [Not Recovered/Not Resolved]
  - Headache [Not Recovered/Not Resolved]
  - Malaise [Not Recovered/Not Resolved]
  - Hypoaesthesia [Recovering/Resolving]
  - Face oedema [Not Recovered/Not Resolved]
  - Neck pain [Not Recovered/Not Resolved]
  - Nightmare [Not Recovered/Not Resolved]
  - Asthenia [Recovering/Resolving]
  - Dyspnoea [Not Recovered/Not Resolved]
  - Oral mucosal blistering [Not Recovered/Not Resolved]
  - Cough [Recovered/Resolved]
  - Sleep disorder [Not Recovered/Not Resolved]
  - Swelling [Not Recovered/Not Resolved]
  - Myalgia [Not Recovered/Not Resolved]
  - Swelling face [Not Recovered/Not Resolved]
  - Constipation [Not Recovered/Not Resolved]
  - Depression suicidal [Not Recovered/Not Resolved]
  - Insomnia [Not Recovered/Not Resolved]
  - Tendon injury [Not Recovered/Not Resolved]

NARRATIVE: CASE EVENT DATE: 20190710
